FAERS Safety Report 4752163-6 (Version None)
Quarter: 2005Q3

REPORT INFORMATION
  Report Type: 
  Country: None (occurrence: None)
  Receive Date: 20050825
  Receipt Date: 20050815
  Transmission Date: 20060218
  Serious: Yes (Other)
  Sender: FDA-Public Use
  Company Number: GB-JNJFOC-20050803761

PATIENT
  Age: 29 Year
  Sex: Male
  Weight: 105 kg

DRUGS (4)
  1. RISPERDAL [Suspect]
     Indication: PSYCHOTIC DISORDER
     Route: 048
  2. CARBAMAZEPINE [Concomitant]
     Indication: AFFECTIVE DISORDER
     Route: 048
  3. PAROXETINE [Concomitant]
     Indication: DEPRESSION
     Route: 048
  4. DIAZEPAM [Concomitant]
     Indication: ANXIETY
     Route: 048

REACTIONS (3)
  - CARDIAC FAILURE [None]
  - CARDIOMYOPATHY [None]
  - TACHYCARDIA [None]
